FAERS Safety Report 24347572 (Version 2)
Quarter: 2024Q3

REPORT INFORMATION
  Report Type: Spontaneous
  Country: US (occurrence: US)
  Receive Date: 20240922
  Receipt Date: 20240927
  Transmission Date: 20241017
  Serious: No
  Sender: ELI LILLY AND CO
  Company Number: US-ELI_LILLY_AND_COMPANY-US202409012276

PATIENT
  Age: 36 Year
  Sex: Female

DRUGS (2)
  1. OMVOH [Suspect]
     Active Substance: MIRIKIZUMAB-MRKZ
     Indication: Product used for unknown indication
     Dosage: UNK UNK, UNKNOWN
     Route: 065
     Dates: start: 20240801
  2. OMVOH [Suspect]
     Active Substance: MIRIKIZUMAB-MRKZ
     Dosage: UNK UNK, UNKNOWN
     Route: 065

REACTIONS (1)
  - Maternal exposure during pregnancy [Unknown]
